FAERS Safety Report 19194356 (Version 2)
Quarter: 2021Q2

REPORT INFORMATION
  Report Type: Spontaneous
  Country: UA (occurrence: UA)
  Receive Date: 20210429
  Receipt Date: 20210625
  Transmission Date: 20210717
  Serious: Yes (Death, Hospitalization, Other)
  Sender: FDA-Public Use
  Company Number: UA-SA-2021SA136755

PATIENT
  Age: 65 Year
  Sex: Female

DRUGS (4)
  1. RIFAMPICIN [Suspect]
     Active Substance: RIFAMPIN
     Dosage: 0.15 G
     Dates: start: 198003
  2. RIFAMPICIN [Suspect]
     Active Substance: RIFAMPIN
     Indication: TUBERCULOSIS
     Dosage: 0.6 G
     Dates: start: 1979
  3. RIFAMPICIN [Suspect]
     Active Substance: RIFAMPIN
     Dosage: 0.45 G, QD
     Dates: start: 1979
  4. RIFAMPICIN [Suspect]
     Active Substance: RIFAMPIN
     Dosage: 0.15 G, 1X
     Dates: start: 19801010

REACTIONS (22)
  - Headache [Fatal]
  - Back pain [Fatal]
  - Body temperature increased [Unknown]
  - Vomiting [Fatal]
  - Diarrhoea [Fatal]
  - Abdominal pain upper [Fatal]
  - Dysuria [Fatal]
  - Hepatic pain [Fatal]
  - Swelling face [Unknown]
  - Pallor [Fatal]
  - Hepatomegaly [Fatal]
  - Hepatic steatosis [Fatal]
  - Chills [Unknown]
  - Peripheral swelling [Fatal]
  - Pulmonary oedema [Fatal]
  - Paraesthesia [Unknown]
  - Rash pruritic [Unknown]
  - Hepatorenal failure [Fatal]
  - Drug hypersensitivity [Unknown]
  - Hypoaesthesia [Unknown]
  - Mucosal discolouration [Fatal]
  - Asthenia [Unknown]

NARRATIVE: CASE EVENT DATE: 1979
